FAERS Safety Report 6299313-0 (Version None)
Quarter: 2009Q3

REPORT INFORMATION
  Report Type: 
  Country: None (occurrence: None)
  Receive Date: 20090806
  Receipt Date: 20090722
  Transmission Date: 20100115
  Serious: Yes (Hospitalization)
  Sender: FDA-Public Use
  Company Number: CN-EISAI INC.-E3810-03017-SPO-CN

PATIENT
  Age: 35 Year
  Sex: Male

DRUGS (2)
  1. PARIET (RABEPRAZOLE) [Suspect]
     Indication: DUODENAL ULCER HAEMORRHAGE
     Route: 048
     Dates: start: 20090720, end: 20090721
  2. CLARITHROMYCIN [Concomitant]
     Indication: DUODENAL ULCER
     Route: 048
     Dates: start: 20090720, end: 20090721

REACTIONS (1)
  - SHOCK [None]
